FAERS Safety Report 13456309 (Version 3)
Quarter: 2017Q2

REPORT INFORMATION
  Report Type: Report from Study
  Country: AT (occurrence: AT)
  Receive Date: 20170418
  Receipt Date: 20170523
  Transmission Date: 20170830
  Serious: Yes (Death, Hospitalization, Disabling, Other)
  Sender: FDA-Public Use
  Company Number: AT-EXELIXIS-CABO-17008446

PATIENT
  Age: 23 Year
  Sex: Male
  Weight: 70 kg

DRUGS (8)
  1. ZOFRAN [Concomitant]
     Active Substance: ONDANSETRON HYDROCHLORIDE
  2. LYRICA [Concomitant]
     Active Substance: PREGABALIN
  3. SAROTEN [Concomitant]
     Active Substance: AMITRIPTYLINE
  4. LATOREN [Concomitant]
  5. PANTOLOC [Concomitant]
     Active Substance: PANTOPRAZOLE SODIUM
  6. LOVENOX [Concomitant]
     Active Substance: ENOXAPARIN SODIUM
  7. NOVALGIN [Concomitant]
     Active Substance: METAMIZOLE SODIUM
  8. CABOMETYX [Suspect]
     Active Substance: CABOZANTINIB S-MALATE
     Indication: TESTICULAR CANCER METASTATIC
     Dosage: 40 MG, QD
     Route: 048
     Dates: start: 20170307, end: 20170404

REACTIONS (4)
  - Malignant neoplasm progression [Fatal]
  - Nausea [Recovered/Resolved]
  - Off label use [Unknown]
  - Leukopenia [Recovering/Resolving]

NARRATIVE: CASE EVENT DATE: 20170321
